FAERS Safety Report 17173563 (Version 2)
Quarter: 2020Q1

REPORT INFORMATION
  Report Type: Report from Study
  Country: US (occurrence: US)
  Receive Date: 20191219
  Receipt Date: 20200127
  Transmission Date: 20200409
  Serious: Yes (Death, Hospitalization)
  Sender: FDA-Public Use
  Company Number: US-BAYER-2019-220781

PATIENT
  Age: 84 Year
  Sex: Male

DRUGS (2)
  1. NEXAVAR [Suspect]
     Active Substance: SORAFENIB
     Indication: HEPATOCELLULAR CARCINOMA
     Dosage: 400 MG, BID
     Route: 048
  2. NEXAVAR [Suspect]
     Active Substance: SORAFENIB
     Indication: HEPATOCELLULAR CARCINOMA
     Dosage: 200 MG, BID
     Route: 048
     Dates: start: 20181026

REACTIONS (5)
  - Off label use [None]
  - Infection [None]
  - Death [Fatal]
  - Incorrect product administration duration [None]
  - Hospitalisation [Unknown]

NARRATIVE: CASE EVENT DATE: 20181026
